FAERS Safety Report 9410599 (Version 3)
Quarter: 2014Q1

REPORT INFORMATION
  Report Type: Spontaneous
  Country: GB (occurrence: GB)
  Receive Date: 20130719
  Receipt Date: 20140207
  Transmission Date: 20141002
  Serious: Yes (Life-Threatening)
  Sender: FDA-Public Use
  Company Number: GB-WATSON-2013-12696

PATIENT
  Age: 91 Year
  Sex: 0

DRUGS (5)
  1. CEFUROXIME SODIUM (UNKNOWN) [Suspect]
     Indication: PRODUCT USED FOR UNKNOWN INDICATION
     Dosage: 1.5 G, TOTAL - STAT DOSE.
     Route: 041
     Dates: start: 20110609, end: 20110609
  2. GENTAMICIN [Suspect]
     Indication: PRODUCT USED FOR UNKNOWN INDICATION
     Dosage: 120 MG, TOTAL - 80 MG/2ML. STAT DOSE.
     Route: 041
     Dates: start: 20110624, end: 20110624
  3. GENTAMICIN [Suspect]
     Dosage: 120 MG, TOTAL - 80 MG/2ML. STAT DOSE.
     Route: 041
     Dates: start: 20110622, end: 20110622
  4. PIPERACILLIN-TAZOBACTAM (UNKNOWN) [Suspect]
     Indication: PRODUCT USED FOR UNKNOWN INDICATION
     Dosage: THREE TIMES DAILY:PIPERACILLIN 4G / TAZOBACTAM 500 MG
     Route: 041
     Dates: start: 20110625, end: 20110701
  5. CIPROFLOXACIN HYDROCHLORIDE (UNKNOWN) [Suspect]
     Indication: PSEUDOMONAS INFECTION
     Dosage: 500 MG, BID
     Route: 048
     Dates: start: 20110617, end: 20110621

REACTIONS (1)
  - Clostridium difficile infection [Unknown]
